FAERS Safety Report 11427518 (Version 1)
Quarter: 2015Q3

REPORT INFORMATION
  Report Type: Spontaneous
  Country: US (occurrence: None)
  Receive Date: 20150827
  Receipt Date: 20150827
  Transmission Date: 20151125
  Serious: Yes (Hospitalization)
  Sender: FDA-Public Use
  Company Number: None

PATIENT
  Age: 64 Year
  Sex: Male
  Weight: 122.3 kg

DRUGS (2)
  1. WARFARIN [Suspect]
     Active Substance: WARFARIN
     Indication: DEEP VEIN THROMBOSIS
     Dates: start: 20150529, end: 20150626
  2. ASPIRIN. [Suspect]
     Active Substance: ASPIRIN
     Indication: CARDIOVASCULAR EVENT PROPHYLAXIS
     Route: 048
     Dates: start: 20150528, end: 20150626

REACTIONS (10)
  - International normalised ratio increased [None]
  - Acute myocardial infarction [None]
  - Bacteraemia [None]
  - Haemorrhagic arteriovenous malformation [None]
  - Gastrointestinal arteriovenous malformation [None]
  - Haemodialysis [None]
  - Anaemia [None]
  - Oxygen saturation decreased [None]
  - Renal failure [None]
  - Gastric haemorrhage [None]

NARRATIVE: CASE EVENT DATE: 20150626
